FAERS Safety Report 14688498 (Version 1)
Quarter: 2018Q1

REPORT INFORMATION
  Report Type: Spontaneous
  Country: JP (occurrence: JP)
  Receive Date: 20180328
  Receipt Date: 20180328
  Transmission Date: 20180509
  Serious: Yes (Death)
  Sender: FDA-Public Use
  Company Number: JP-JNJFOC-20180336637

PATIENT
  Age: 77 Year
  Sex: Male

DRUGS (7)
  1. NILVADIPINE [Concomitant]
     Active Substance: NILVADIPINE
     Route: 048
     Dates: end: 20180222
  2. CILOSTAZOL. [Concomitant]
     Active Substance: CILOSTAZOL
     Route: 048
  3. CANAGLIFLOZIN [Suspect]
     Active Substance: CANAGLIFLOZIN
     Indication: PRODUCT USED FOR UNKNOWN INDICATION
     Route: 048
     Dates: start: 20180211, end: 20180222
  4. GLIMEPIRIDE. [Concomitant]
     Active Substance: GLIMEPIRIDE
     Route: 048
     Dates: end: 20180222
  5. URIEF [Concomitant]
     Active Substance: SILODOSIN
     Route: 048
     Dates: end: 20180222
  6. TENELIA [Suspect]
     Active Substance: TENELIGLIPTIN
     Indication: PRODUCT USED FOR UNKNOWN INDICATION
     Route: 048
     Dates: start: 20180209, end: 20180222
  7. SEIBULE [Concomitant]
     Active Substance: MIGLITOL
     Route: 048
     Dates: end: 20180222

REACTIONS (2)
  - Septic shock [Fatal]
  - Acute kidney injury [Fatal]

NARRATIVE: CASE EVENT DATE: 20180223
